FAERS Safety Report 22180866 (Version 3)
Quarter: 2023Q2

REPORT INFORMATION
  Report Type: Spontaneous
  Country: US (occurrence: US)
  Receive Date: 20230406
  Receipt Date: 20230623
  Transmission Date: 20230721
  Serious: Yes (Hospitalization, Disabling, Other)
  Sender: FDA-Public Use
  Company Number: US-PFIZER INC-PV202300062056

PATIENT
  Age: 31 Year
  Sex: Female
  Weight: 99.773 kg

DRUGS (3)
  1. FRAGMIN [Suspect]
     Active Substance: DALTEPARIN SODIUM
     Indication: Blood disorder
     Dosage: 18000 IU, 1X/DAY
  2. FRAGMIN [Suspect]
     Active Substance: DALTEPARIN SODIUM
     Indication: Acquired factor VIII deficiency
  3. DALTEPARIN SODIUM [Suspect]
     Active Substance: DALTEPARIN SODIUM
     Indication: Blood disorder
     Dosage: UNK, 1X/DAY

REACTIONS (20)
  - Spinal operation [Not Recovered/Not Resolved]
  - Pulmonary thrombosis [Not Recovered/Not Resolved]
  - Pneumonia [Unknown]
  - Factor II deficiency [Not Recovered/Not Resolved]
  - International normalised ratio abnormal [Not Recovered/Not Resolved]
  - Ataxia [Recovered/Resolved]
  - Dyspnoea [Recovered/Resolved]
  - Spinal fusion surgery [Unknown]
  - Spinal fusion surgery [Recovered/Resolved]
  - Spinal deformity [Unknown]
  - Thyroid cancer [Unknown]
  - Oxygen saturation decreased [Unknown]
  - Shoulder fracture [Unknown]
  - Fall [Unknown]
  - Limb injury [Unknown]
  - COVID-19 [Unknown]
  - Chest pain [Unknown]
  - Back pain [Unknown]
  - Pain in extremity [Recovered/Resolved]
  - Off label use [Unknown]

NARRATIVE: CASE EVENT DATE: 20010101
